APPROVED DRUG PRODUCT: CETIRIZINE HYDROCHLORIDE AND PSEUDOEPHEDRINE HYDROCHLORIDE
Active Ingredient: CETIRIZINE HYDROCHLORIDE; PSEUDOEPHEDRINE HYDROCHLORIDE
Strength: 5MG;120MG
Dosage Form/Route: TABLET, EXTENDED RELEASE;ORAL
Application: A077170 | Product #001
Applicant: IVAX PHARMACEUTICALS INC SUB TEVA PHARMACEUTICALS USA
Approved: Feb 25, 2008 | RLD: No | RS: No | Type: OTC